FAERS Safety Report 10378898 (Version 2)
Quarter: 2014Q3

REPORT INFORMATION
  Report Type: Spontaneous
  Country: US (occurrence: US)
  Receive Date: 20140812
  Receipt Date: 20140812
  Transmission Date: 20150326
  Serious: Yes (Hospitalization)
  Sender: FDA-Public Use
  Company Number: US-BRISTOL-MYERS SQUIBB COMPANY-21261136

PATIENT
  Age: 27 Year
  Sex: Male
  Weight: 68 kg

DRUGS (3)
  1. ABILIFY MAINTENA [Suspect]
     Active Substance: ARIPIPRAZOLE
     Indication: SCHIZOPHRENIA, PARANOID TYPE
     Dosage: INCREASED: 400MG
     Route: 030
     Dates: start: 20140428, end: 20140721
  2. ABILIFY [Suspect]
     Active Substance: ARIPIPRAZOLE
     Dosage: 5MG FOR FOUR DAYS THEN 10MG DAILY FOR TWO WEEKS
     Route: 048
     Dates: start: 20140414
  3. TRAZODONE HYDROCHLORIDE. [Concomitant]
     Active Substance: TRAZODONE HYDROCHLORIDE

REACTIONS (4)
  - Delusion [Recovered/Resolved]
  - Anger [Recovered/Resolved]
  - Paranoia [Recovered/Resolved]
  - Homicidal ideation [Recovered/Resolved]

NARRATIVE: CASE EVENT DATE: 20140716
